FAERS Safety Report 12639022 (Version 2)
Quarter: 2016Q3

REPORT INFORMATION
  Report Type: Report from Study
  Country: MX (occurrence: MX)
  Receive Date: 20160809
  Receipt Date: 20160819
  Transmission Date: 20161109
  Serious: Yes (Other)
  Sender: FDA-Public Use
  Company Number: PHHY2016MX109036

PATIENT
  Age: 37 Year
  Sex: Male
  Weight: 59 kg

DRUGS (2)
  1. ULTIBRO BREEZHALER [Suspect]
     Active Substance: GLYCOPYRRONIUM\INDACATEROL
     Indication: CHRONIC OBSTRUCTIVE PULMONARY DISEASE
     Dosage: 50 UG, QD
     Route: 055
     Dates: start: 201607, end: 20160804
  2. SALBUTAMOL [Concomitant]
     Active Substance: ALBUTEROL
     Indication: CHRONIC OBSTRUCTIVE PULMONARY DISEASE
     Dosage: 6 OT, QD
     Route: 055
     Dates: start: 2014

REACTIONS (6)
  - Pruritus [Recovered/Resolved]
  - Respiratory disorder [Recovering/Resolving]
  - Asphyxia [Unknown]
  - Eye irritation [Recovered/Resolved]
  - Concomitant disease aggravated [Recovering/Resolving]
  - Dyspnoea [Unknown]

NARRATIVE: CASE EVENT DATE: 201607
